FAERS Safety Report 6548155-7 (Version None)
Quarter: 2010Q1

REPORT INFORMATION
  Report Type: 
  Country: None (occurrence: None)
  Receive Date: 20100124
  Receipt Date: 20090206
  Transmission Date: 20100710
  Serious: No
  Sender: FDA-Public Use
  Company Number: US-ALLERGAN-0901342US

PATIENT
  Age: 75 Year
  Sex: Female

DRUGS (9)
  1. RESTASIS [Suspect]
     Indication: BLEPHARITIS
     Dosage: 1 GTT, BID
     Route: 047
     Dates: start: 20081101
  2. RESTASIS [Suspect]
     Indication: DRY EYE
  3. COUMADIN [Suspect]
     Indication: ATRIAL FIBRILLATION
     Dosage: UNK, UNK
     Dates: start: 20080101, end: 20090115
  4. PREDNISOLONE [Concomitant]
     Indication: BLEPHARITIS
     Dosage: UNK, QID
     Route: 047
  5. COMBIVENT [Concomitant]
     Indication: LUNG DISORDER
  6. FLOVENT [Concomitant]
     Indication: LUNG DISORDER
  7. ATENOLOL [Concomitant]
     Indication: HYPERTENSION
  8. DIOVAN [Concomitant]
     Indication: HYPERTENSION
  9. FLECAINIDE [Concomitant]
     Indication: ATRIAL FIBRILLATION

REACTIONS (2)
  - CONJUNCTIVAL HAEMORRHAGE [None]
  - EYE PAIN [None]
